FAERS Safety Report 6726252-0 (Version None)
Quarter: 2010Q2

REPORT INFORMATION
  Report Type: 
  Country: None (occurrence: None)
  Receive Date: 20100514
  Receipt Date: 20100514
  Transmission Date: 20101027
  Serious: Yes (Hospitalization)
  Sender: FDA-Public Use
  Company Number: US-ROXANE LABORATORIES, INC.-2010-RO-00351RO

PATIENT
  Sex: Female
  Weight: 61 kg

DRUGS (6)
  1. MEFLOQUINE HYDROCHLORIDE [Suspect]
     Indication: MALARIA PROPHYLAXIS
     Route: 048
     Dates: start: 20100306, end: 20100321
  2. VYVANSE [Concomitant]
     Indication: ATTENTION DEFICIT/HYPERACTIVITY DISORDER
     Dates: end: 20100327
  3. FEXOFENADINE [Concomitant]
     Indication: MULTIPLE ALLERGIES
  4. NASACORT [Concomitant]
     Indication: MULTIPLE ALLERGIES
  5. MULTI-VITAMIN [Concomitant]
  6. ALLEGRA [Concomitant]
     Indication: HYPERSENSITIVITY
     Dates: end: 20100327

REACTIONS (21)
  - ABDOMINAL PAIN UPPER [None]
  - ABNORMAL DREAMS [None]
  - ANXIETY [None]
  - COGNITIVE DISORDER [None]
  - CONTUSION [None]
  - DECREASED APPETITE [None]
  - DEPRESSION [None]
  - DISTURBANCE IN ATTENTION [None]
  - DYSPNOEA [None]
  - FATIGUE [None]
  - HALLUCINATION [None]
  - INSOMNIA [None]
  - MEMORY IMPAIRMENT [None]
  - NIGHTMARE [None]
  - PARANOIA [None]
  - PERSONALITY CHANGE [None]
  - SINUSITIS [None]
  - SLEEP DISORDER [None]
  - SPEECH DISORDER [None]
  - TACHYCARDIA [None]
  - TINNITUS [None]
